FAERS Safety Report 8723525 (Version 3)
Quarter: 2013Q2

REPORT INFORMATION
  Report Type: Report from Study
  Country: JP (occurrence: JP)
  Receive Date: 20120814
  Receipt Date: 20130614
  Transmission Date: 20140414
  Serious: Yes (Other)
  Sender: FDA-Public Use
  Company Number: JP-009507513-1208JPN000137

PATIENT
  Age: 55 Year
  Sex: Male
  Weight: 70 kg

DRUGS (10)
  1. PEGINTRON [Suspect]
     Indication: CHRONIC HEPATITIS C
     Dosage: 1.43 MICROGRAM PER KILOGRAM, QW
     Route: 058
     Dates: start: 20120409, end: 20120611
  2. PEGINTRON [Suspect]
     Dosage: 0.7 MICROGRAM PER KILOGRAM, QW
     Route: 058
     Dates: start: 20120618, end: 20120701
  3. PEGINTRON [Suspect]
     Dosage: 1.43 MICROGRAM PER KILOGRAM, QW
     Route: 058
     Dates: start: 20120702, end: 20120820
  4. REBETOL [Suspect]
     Indication: CHRONIC HEPATITIS C
     Dosage: 800 MG, ONCE
     Route: 048
     Dates: start: 20120409, end: 20120513
  5. REBETOL [Suspect]
     Dosage: 600 MG, QD
     Route: 048
     Dates: start: 20120514, end: 20120520
  6. REBETOL [Suspect]
     Dosage: 800 MG, QD
     Route: 048
     Dates: start: 20120521, end: 20120827
  7. TELAVIC [Suspect]
     Indication: CHRONIC HEPATITIS C
     Dosage: 2250 MG, QD
     Route: 048
     Dates: start: 20120409, end: 20120624
  8. TELAVIC [Suspect]
     Dosage: 1500 MG, QD
     Route: 048
     Dates: start: 20120625, end: 20120701
  9. JANUVIA [Concomitant]
     Indication: DIABETES MELLITUS
     Dosage: 50 MG, QD
     Route: 048
     Dates: start: 20120507, end: 20120702
  10. MARZULENE-S [Concomitant]
     Indication: PROPHYLAXIS
     Dosage: 0.5 G/DAY AS NEEDED, POR
     Route: 048
     Dates: start: 20120730

REACTIONS (1)
  - Rash [Recovering/Resolving]
